FAERS Safety Report 5109111-9 (Version None)
Quarter: 2006Q3

REPORT INFORMATION
  Report Type: 
  Country: None (occurrence: None)
  Receive Date: 20060918
  Receipt Date: 20060901
  Transmission Date: 20061208
  Serious: Yes (Hospitalization)
  Sender: FDA-Public Use
  Company Number: PAR_0649_2006

PATIENT
  Age: 41 Year
  Weight: 104.3273 kg

DRUGS (3)
  1. QUINAPRIL HCL [Suspect]
     Indication: HYPERTENSION
     Dosage: 40 MG QDAY PO
     Route: 048
  2. COREG [Suspect]
     Indication: HYPERTENSION
     Dosage: DF
  3. HYDROCHLOROTHIAZDE TAB [Suspect]
     Indication: HYPERTENSION
     Dosage: DF

REACTIONS (9)
  - ANAEMIA [None]
  - BLOOD POTASSIUM DECREASED [None]
  - DIZZINESS [None]
  - EOSINOPHIL COUNT DECREASED [None]
  - LABORATORY TEST ABNORMAL [None]
  - MENORRHAGIA [None]
  - PAPILLOEDEMA [None]
  - PLATELET COUNT INCREASED [None]
  - UTERINE LEIOMYOMA [None]
